FAERS Safety Report 8612929-9 (Version None)
Quarter: 2012Q3

REPORT INFORMATION
  Report Type: 
  Country: None (occurrence: None)
  Receive Date: 20120822
  Receipt Date: 20120424
  Transmission Date: 20120928
  Serious: No
  Sender: FDA-Public Use
  Company Number: US-ALLERGAN-1205854US

PATIENT
  Age: 70 Year
  Sex: Female

DRUGS (1)
  1. SANCTURA XR [Suspect]
     Indication: URINARY INCONTINENCE
     Dosage: UNK
     Route: 048
     Dates: start: 20111101

REACTIONS (1)
  - PARAESTHESIA [None]
